FAERS Safety Report 13840778 (Version 1)
Quarter: 2017Q3

REPORT INFORMATION
  Report Type: Spontaneous
  Country: US (occurrence: US)
  Receive Date: 20170807
  Receipt Date: 20170807
  Transmission Date: 20171127
  Serious: Yes (Other)
  Sender: FDA-Public Use
  Company Number: US-AMGEN-USASP2017117239

PATIENT
  Age: 73 Year
  Sex: Female

DRUGS (1)
  1. PROLIA [Suspect]
     Active Substance: DENOSUMAB
     Indication: POSTMENOPAUSE
     Dosage: UNK
     Route: 065
     Dates: start: 201701, end: 2017

REACTIONS (7)
  - Off label use [Unknown]
  - Pruritus [Unknown]
  - Eye swelling [Unknown]
  - Swelling face [Unknown]
  - Erythema [Unknown]
  - Cough [Unknown]
  - Bipolar disorder [Unknown]

NARRATIVE: CASE EVENT DATE: 2017
